FAERS Safety Report 7522349-6 (Version None)
Quarter: 2011Q2

REPORT INFORMATION
  Report Type: 
  Country: None (occurrence: None)
  Receive Date: 20110603
  Receipt Date: 20110523
  Transmission Date: 20111010
  Serious: Yes (Other)
  Sender: FDA-Public Use
  Company Number: US-TYCO HEALTHCARE/MALLINCKRODT-T201101083

PATIENT

DRUGS (1)
  1. THALLOUS CHLORIDE TL-201 [Suspect]
     Dosage: 5 MCI, UNK
     Dates: start: 20100101, end: 20100101

REACTIONS (1)
  - SARCOMA [None]
